FAERS Safety Report 17065642 (Version 1)
Quarter: 2019Q4

REPORT INFORMATION
  Report Type: Spontaneous
  Country: US (occurrence: US)
  Receive Date: 20191122
  Receipt Date: 20191122
  Transmission Date: 20200122
  Serious: Yes (Hospitalization)
  Sender: FDA-Public Use
  Company Number: None

PATIENT
  Sex: Female

DRUGS (9)
  1. CYMBALTA [Concomitant]
     Active Substance: DULOXETINE HYDROCHLORIDE
  2. LEVOTHYROXIN [Concomitant]
     Active Substance: LEVOTHYROXINE
  3. ELIQUIS [Concomitant]
     Active Substance: APIXABAN
  4. LYRICA [Concomitant]
     Active Substance: PREGABALIN
  5. FENTANYL. [Concomitant]
     Active Substance: FENTANYL
  6. MORPHINE SULF TAB [Concomitant]
  7. POTASSIUM [Concomitant]
     Active Substance: POTASSIUM
  8. IBRANCE [Suspect]
     Active Substance: PALBOCICLIB
     Indication: BREAST CANCER FEMALE
     Dosage: ?          OTHER FREQUENCY:DAILY ON DAYS 1-21;?
     Route: 048
     Dates: start: 20190423
  9. LASIX [Concomitant]
     Active Substance: FUROSEMIDE

REACTIONS (2)
  - Therapy cessation [None]
  - Pneumonia [None]
